FAERS Safety Report 8618172-1 (Version None)
Quarter: 2012Q3

REPORT INFORMATION
  Report Type: 
  Country: None (occurrence: None)
  Receive Date: 20120824
  Receipt Date: 20110901
  Transmission Date: 20120928
  Serious: No
  Sender: FDA-Public Use
  Company Number: US-ASTRAZENECA-2011SE52909

PATIENT

DRUGS (7)
  1. CRESTOR [Suspect]
     Route: 048
  2. SYMBICORT [Suspect]
     Route: 055
  3. PREMARIN [Concomitant]
  4. VYTORIN [Concomitant]
     Dosage: 10/10 1/2 DAILY
     Route: 048
  5. CALAN SR [Concomitant]
     Route: 048
  6. HYZAAR [Concomitant]
     Dosage: 100/25 MG DAILY
  7. XOPENEX [Concomitant]

REACTIONS (2)
  - DRUG HYPERSENSITIVITY [None]
  - BONE PAIN [None]
